FAERS Safety Report 12319016 (Version 2)
Quarter: 2016Q2

REPORT INFORMATION
  Report Type: Spontaneous
  Country: DE (occurrence: DE)
  Receive Date: 20160429
  Receipt Date: 20160519
  Transmission Date: 20160815
  Serious: Yes (Hospitalization, Other)
  Sender: FDA-Public Use
  Company Number: DE-INCYTE CORPORATION-2016IN002413

PATIENT
  Age: 67 Year
  Sex: Male

DRUGS (2)
  1. JAKAFI [Suspect]
     Active Substance: RUXOLITINIB
     Indication: MYELOFIBROSIS
     Dosage: 5 MG, UNK
     Route: 048
     Dates: start: 20130703, end: 20160330
  2. RAMIPRIL. [Concomitant]
     Active Substance: RAMIPRIL
     Indication: HYPERTONIA
     Dosage: 5 MG, QD
     Route: 048
     Dates: start: 2013

REACTIONS (6)
  - Oedema peripheral [Not Recovered/Not Resolved]
  - Thrombotic microangiopathy [Unknown]
  - Dyspnoea [Not Recovered/Not Resolved]
  - Stenosis [Unknown]
  - Somnolence [Unknown]
  - Nephrotic syndrome [Not Recovered/Not Resolved]

NARRATIVE: CASE EVENT DATE: 201512
